FAERS Safety Report 7069545-2 (Version None)
Quarter: 2010Q4

REPORT INFORMATION
  Report Type: 
  Country: None (occurrence: None)
  Receive Date: 20101028
  Receipt Date: 20100302
  Transmission Date: 20110411
  Serious: No
  Sender: FDA-Public Use
  Company Number: US-WYE-H13967410

PATIENT
  Age: 87 Year
  Sex: Male

DRUGS (2)
  1. PROTONIX [Suspect]
     Route: 048
     Dates: start: 20060101, end: 20100201
  2. PREDNISONE [Concomitant]

REACTIONS (1)
  - NAUSEA [None]
